FAERS Safety Report 14859874 (Version 1)
Quarter: 2018Q2

REPORT INFORMATION
  Report Type: Spontaneous
  Country: FR (occurrence: FR)
  Receive Date: 20180508
  Receipt Date: 20180508
  Transmission Date: 20180711
  Serious: Yes (Other)
  Sender: FDA-Public Use
  Company Number: FR-MERCK KGAA-2047392

PATIENT
  Age: 61 Year
  Sex: Female

DRUGS (1)
  1. NOVOTHYROX [Suspect]
     Active Substance: LEVOTHYROXINE SODIUM
     Indication: POST PROCEDURAL HYPOTHYROIDISM

REACTIONS (15)
  - Mental impairment [None]
  - Gait disturbance [None]
  - Apathy [None]
  - Disturbance in attention [None]
  - Decreased interest [None]
  - Social avoidant behaviour [None]
  - Mood swings [None]
  - Fear [None]
  - Pain in extremity [None]
  - Balance disorder [None]
  - Nervousness [None]
  - Amnesia [None]
  - Blood thyroid stimulating hormone increased [None]
  - Headache [None]
  - Feeling abnormal [None]

NARRATIVE: CASE EVENT DATE: 20170915
